FAERS Safety Report 8779842 (Version 1)
Quarter: 2012Q4

REPORT INFORMATION
  Report Type: 
  Country: US (occurrence: US)
  Receive Date: 20120912
  Receipt Date: 20120912
  Transmission Date: 20130627
  Serious: No
  Sender: FDA-Public Use
  Company Number: US-TEVA-358636USA

PATIENT
  Age: 17 Year
  Sex: Female
  Weight: 77.18 kg

DRUGS (7)
  1. PLAN B ONE-STEP [Suspect]
     Indication: POST COITAL CONTRACEPTION
     Dosage: 1.5 Milligram Daily;
     Route: 048
     Dates: start: 20120828, end: 20120828
  2. LOESTRIN 24 [Concomitant]
     Indication: ANAEMIA
  3. LOESTRIN 24 [Concomitant]
     Indication: CONTRACEPTION
  4. PROZAC [Concomitant]
     Indication: DEPRESSION
  5. PROZAC [Concomitant]
     Indication: PANIC ATTACK
  6. ABILIFY [Concomitant]
     Indication: DEPRESSION
  7. ABILIFY [Concomitant]
     Indication: PANIC ATTACK

REACTIONS (5)
  - Back pain [Recovered/Resolved]
  - Fatigue [Unknown]
  - Breast tenderness [Unknown]
  - Menstruation delayed [Not Recovered/Not Resolved]
  - Off label use [Unknown]
